FAERS Safety Report 7610233-9 (Version None)
Quarter: 2011Q3

REPORT INFORMATION
  Report Type: 
  Country: None (occurrence: None)
  Receive Date: 20110706
  Receipt Date: 20110629
  Transmission Date: 20111222
  Serious: Yes (Death, Hospitalization)
  Sender: FDA-Public Use
  Company Number: 2011SP024776

PATIENT
  Age: 50 Year
  Sex: Male
  Weight: 89.3 kg

DRUGS (21)
  1. DEPAKENE [Concomitant]
  2. ASPIRIN [Concomitant]
  3. TEMODAL [Suspect]
     Indication: ANAPLASTIC ASTROCYTOMA
     Dosage: PO; 200 MG/M2;QD;PO; 150 MG/M2;QD;PO
     Route: 048
     Dates: start: 20070713, end: 20070814
  4. TEMODAL [Suspect]
     Indication: ANAPLASTIC ASTROCYTOMA
     Dosage: PO; 200 MG/M2;QD;PO; 150 MG/M2;QD;PO
     Route: 048
     Dates: start: 20090515, end: 20090616
  5. TEMODAL [Suspect]
     Indication: ANAPLASTIC ASTROCYTOMA
     Dosage: PO; 200 MG/M2;QD;PO; 150 MG/M2;QD;PO
     Route: 048
     Dates: start: 20080418, end: 20080520
  6. TEMODAL [Suspect]
     Indication: ANAPLASTIC ASTROCYTOMA
     Dosage: PO; 200 MG/M2;QD;PO; 150 MG/M2;QD;PO
     Route: 048
     Dates: start: 20090807, end: 20091006
  7. TEMODAL [Suspect]
     Indication: ANAPLASTIC ASTROCYTOMA
     Dosage: PO; 200 MG/M2;QD;PO; 150 MG/M2;QD;PO
     Route: 048
     Dates: start: 20100219, end: 20100321
  8. TEMODAL [Suspect]
     Indication: ANAPLASTIC ASTROCYTOMA
     Dosage: PO; 200 MG/M2;QD;PO; 150 MG/M2;QD;PO
     Route: 048
     Dates: start: 20090709, end: 20090713
  9. TEMODAL [Suspect]
     Indication: ANAPLASTIC ASTROCYTOMA
     Dosage: PO; 200 MG/M2;QD;PO; 150 MG/M2;QD;PO
     Route: 048
     Dates: start: 20091030, end: 20091201
  10. TEMODAL [Suspect]
     Indication: ANAPLASTIC ASTROCYTOMA
     Dosage: PO; 200 MG/M2;QD;PO; 150 MG/M2;QD;PO
     Route: 048
     Dates: start: 20091225, end: 20100126
  11. TEMODAL [Suspect]
     Indication: ANAPLASTIC ASTROCYTOMA
     Dosage: PO; 200 MG/M2;QD;PO; 150 MG/M2;QD;PO
     Route: 048
     Dates: start: 20070907, end: 20071204
  12. TEMODAL [Suspect]
     Indication: ANAPLASTIC ASTROCYTOMA
     Dosage: PO; 200 MG/M2;QD;PO; 150 MG/M2;QD;PO
     Route: 048
     Dates: start: 20090417, end: 20090421
  13. TEMODAL [Suspect]
     Indication: ANAPLASTIC ASTROCYTOMA
     Dosage: PO; 200 MG/M2;QD;PO; 150 MG/M2;QD;PO
     Route: 048
     Dates: start: 20060922, end: 20070619
  14. TEMODAL [Suspect]
     Indication: ANAPLASTIC ASTROCYTOMA
     Dosage: PO; 200 MG/M2;QD;PO; 150 MG/M2;QD;PO
     Route: 048
     Dates: start: 20080613, end: 20090323
  15. TEMODAL [Suspect]
     Indication: ANAPLASTIC ASTROCYTOMA
     Dosage: PO; 200 MG/M2;QD;PO; 150 MG/M2;QD;PO
     Route: 048
     Dates: start: 20051115, end: 20060816
  16. TEMODAL [Suspect]
     Indication: ANAPLASTIC ASTROCYTOMA
     Dosage: PO; 200 MG/M2;QD;PO; 150 MG/M2;QD;PO
     Route: 048
     Dates: start: 20071225, end: 20080129
  17. TEMODAL [Suspect]
     Indication: ANAPLASTIC ASTROCYTOMA
     Dosage: PO; 200 MG/M2;QD;PO; 150 MG/M2;QD;PO
     Route: 048
     Dates: start: 20080222, end: 20080325
  18. GRANISETRON /01178102/ [Concomitant]
  19. MYSTAN [Concomitant]
  20. DIOVAN [Concomitant]
  21. RAMELTEON [Concomitant]

REACTIONS (5)
  - WHITE BLOOD CELL COUNT DECREASED [None]
  - LYMPHOCYTE COUNT DECREASED [None]
  - ANAPLASTIC ASTROCYTOMA [None]
  - PLATELET COUNT DECREASED [None]
  - DISEASE PROGRESSION [None]
